FAERS Safety Report 10198628 (Version 1)
Quarter: 2014Q2

REPORT INFORMATION
  Report Type: Report from Study
  Country: US (occurrence: US)
  Receive Date: 20140527
  Receipt Date: 20140527
  Transmission Date: 20141212
  Serious: Yes (Other)
  Sender: FDA-Public Use
  Company Number: US-ABBVIE-14P-163-1239579-00

PATIENT
  Age: 64 Year
  Sex: Male

DRUGS (23)
  1. HUMIRA [Suspect]
     Indication: CROHN^S DISEASE
     Dates: start: 20140513
  2. HUMIRA [Suspect]
     Dates: start: 20140514
  3. ADVAIR [Concomitant]
     Indication: CHRONIC OBSTRUCTIVE PULMONARY DISEASE
  4. ADVAIR [Concomitant]
     Indication: EXPOSURE TO CHEMICAL POLLUTION
  5. SPIRIVA [Concomitant]
     Indication: CHRONIC OBSTRUCTIVE PULMONARY DISEASE
     Dosage: IN MORNING
  6. SPIRIVA [Concomitant]
     Indication: EXPOSURE TO CHEMICAL POLLUTION
  7. PROVENTIL [Concomitant]
     Indication: CHRONIC OBSTRUCTIVE PULMONARY DISEASE
  8. PROVENTIL [Concomitant]
     Indication: EXPOSURE TO CHEMICAL POLLUTION
  9. SINGULAIR [Concomitant]
     Indication: ASTHMA
     Dosage: AT BEDTIME
  10. DIAZEPAM [Concomitant]
     Indication: TREMOR
  11. TRAZODONE [Concomitant]
     Indication: DEPRESSION
     Dosage: AT BEDTIME
  12. MUCINEX [Concomitant]
     Indication: CHRONIC OBSTRUCTIVE PULMONARY DISEASE
  13. REGLAN [Concomitant]
     Indication: NAUSEA
  14. TYLENOL [Concomitant]
     Indication: PAIN
  15. CALCIUM W/VITAMIN D [Concomitant]
     Indication: OSTEOPOROSIS
     Dosage: 1200MG CALCIUM AND 800 IU VITAMIN D TOTAL
  16. FORTICAL [Concomitant]
     Indication: OSTEOPOROSIS
     Dosage: 1 SPRAY
  17. WELCHOL [Concomitant]
     Indication: DIARRHOEA
     Dosage: UP TO 4 TABLETS A DAY
  18. VITAMIN B12 [Concomitant]
     Indication: PRODUCT USED FOR UNKNOWN INDICATION
  19. OMEPRAZOLE [Concomitant]
     Indication: GASTROOESOPHAGEAL REFLUX DISEASE
  20. VITAMIN E [Concomitant]
     Indication: PRODUCT USED FOR UNKNOWN INDICATION
  21. LASIX [Concomitant]
     Indication: OEDEMA
  22. POTASSIUM [Concomitant]
     Indication: OEDEMA
  23. NITROSTAT [Concomitant]
     Indication: ANGINA PECTORIS

REACTIONS (4)
  - Abdominal distension [Not Recovered/Not Resolved]
  - Device issue [Unknown]
  - Injection site pain [Unknown]
  - Diarrhoea [Unknown]
